FAERS Safety Report 5959782-X (Version None)
Quarter: 2008Q4

REPORT INFORMATION
  Report Type: 
  Country: None (occurrence: None)
  Receive Date: 20081120
  Receipt Date: 20081111
  Transmission Date: 20090506
  Serious: Yes (Hospitalization, Congenital Anomaly)
  Sender: FDA-Public Use
  Company Number: A0679819A

PATIENT
  Sex: Female

DRUGS (4)
  1. PAXIL [Suspect]
     Indication: DEPRESSION
     Dosage: 40MG UNKNOWN
     Route: 048
     Dates: start: 19940101, end: 20030701
  2. PAXIL CR [Suspect]
     Indication: DEPRESSION
     Dates: start: 20030801, end: 20070801
  3. PAROXETINE HCL [Suspect]
     Indication: DEPRESSION
     Dates: start: 20050401, end: 20061001
  4. VITAMIN TAB [Concomitant]

REACTIONS (3)
  - CONGENITAL CYSTIC LUNG [None]
  - DRUG EXPOSURE DURING PREGNANCY [None]
  - MULTIPLE CONGENITAL ABNORMALITIES [None]
